FAERS Safety Report 10248182 (Version 1)
Quarter: 2014Q2

REPORT INFORMATION
  Report Type: Spontaneous
  Country: AM (occurrence: AM)
  Receive Date: 20140620
  Receipt Date: 20140620
  Transmission Date: 20141212
  Serious: Yes (Death, Other)
  Sender: FDA-Public Use
  Company Number: PHHY2014AM071696

PATIENT
  Sex: 0

DRUGS (1)
  1. METHYLPREDNISOLONE [Suspect]
     Indication: INFANTILE SPASMS
     Dosage: 32 MG

REACTIONS (7)
  - Death [Fatal]
  - Dyskinesia [Recovered/Resolved]
  - Hypertension [Recovered/Resolved]
  - Electrolyte imbalance [Unknown]
  - Hyperglycaemia [Unknown]
  - Cushingoid [Unknown]
  - Infection [Recovered/Resolved]
